FAERS Safety Report 24996246 (Version 2)
Quarter: 2025Q1

REPORT INFORMATION
  Report Type: Report from Study
  Country: DE (occurrence: DE)
  Receive Date: 20250221
  Receipt Date: 20250225
  Transmission Date: 20250408
  Serious: Yes (Death, Other)
  Sender: EXELIXIS
  Company Number: DE-IPSEN Group, Research and Development-2025-03170

PATIENT

DRUGS (20)
  1. CABOZANTINIB [Suspect]
     Active Substance: CABOZANTINIB
     Indication: Renal cell carcinoma
     Dosage: 20 MG DAILY (MORNING)
     Route: 065
     Dates: start: 20250123, end: 20250207
  2. ACETYLCYSTEINE [Concomitant]
     Active Substance: ACETYLCYSTEINE
     Indication: Cough
     Route: 048
  3. ATORVASTATIN [Concomitant]
     Active Substance: ATORVASTATIN
     Indication: Hypercholesterolaemia
     Dosage: 20 MG, QD
     Route: 048
  4. ATROVENT [Concomitant]
     Active Substance: IPRATROPIUM BROMIDE
     Indication: Dyspnoea
     Route: 050
  5. BISACODYL [Concomitant]
     Active Substance: BISACODYL
     Indication: Laxative supportive care
     Route: 048
  6. FOLIC ACID [Concomitant]
     Active Substance: FOLIC ACID
     Indication: Folate deficiency
     Dosage: 0.4 MG, QD
     Route: 048
  7. FORTIMEL PROTEIN [Concomitant]
     Indication: Nutritional supplementation
     Dosage: 2 (OTHER)
     Route: 048
  8. ENOXAPARIN SODIUM [Concomitant]
     Active Substance: ENOXAPARIN SODIUM
     Indication: Anticoagulant therapy
     Dosage: 1000 MG, QD
     Route: 023
  9. JARDIANCE [Concomitant]
     Active Substance: EMPAGLIFLOZIN
     Indication: Diabetes mellitus
     Dosage: 10 MG, QD
     Route: 048
  10. POLYETHYLENE GLYCOLS [Concomitant]
     Active Substance: POLYETHYLENE GLYCOLS
     Indication: Constipation
     Dosage: UNK  QD
     Route: 048
  11. MCP [Concomitant]
     Active Substance: METOCLOPRAMIDE HYDROCHLORIDE
     Indication: Antiemetic supportive care
     Route: 048
  12. METAMIZOL [Concomitant]
     Active Substance: METAMIZOLE SODIUM
     Indication: Analgesic therapy
  13. METOPROLOL [Concomitant]
     Active Substance: METOPROLOL
     Indication: Blood pressure management
     Dosage: 47.5 MG, QD
     Route: 048
  14. Nac ratiopharm [Concomitant]
     Indication: Cough
     Dosage: 600 MG, QD
     Route: 048
  15. PANTOPRAZOLE SODIUM [Concomitant]
     Active Substance: PANTOPRAZOLE SODIUM
     Indication: Gastrointestinal disorder prophylaxis
     Dosage: 40 MG, QD
     Route: 048
  16. PIPAMPERONE HYDROCHLORIDE [Concomitant]
     Active Substance: PIPAMPERONE HYDROCHLORIDE
     Indication: Antipsychotic therapy
     Route: 048
  17. ALBUTEROL [Concomitant]
     Active Substance: ALBUTEROL
     Indication: Bronchial disorder
     Route: 048
  18. TORSEMIDE [Concomitant]
     Active Substance: TORSEMIDE
     Indication: Hypertension
     Route: 048
  19. VITAMIN D3 [Concomitant]
     Active Substance: CHOLECALCIFEROL
     Indication: Vitamin D deficiency
     Dosage: 1/7D - ONE TIME PER WEEK
  20. ZOLEDRONIC ACID [Concomitant]
     Active Substance: ZOLEDRONIC ACID
     Indication: Anticoagulant therapy
     Dates: start: 20250207

REACTIONS (3)
  - Cardiac failure [Fatal]
  - General physical health deterioration [Fatal]
  - Pleural effusion [Fatal]

NARRATIVE: CASE EVENT DATE: 20250123
